FAERS Safety Report 19966732 (Version 2)
Quarter: 2021Q4

REPORT INFORMATION
  Report Type: Spontaneous
  Country: US (occurrence: US)
  Receive Date: 20211019
  Receipt Date: 20211216
  Transmission Date: 20220303
  Serious: Yes (Disabling)
  Sender: FDA-Public Use
  Company Number: US-NOVOPROD-853210

PATIENT
  Age: 61 Year
  Sex: Female

DRUGS (1)
  1. SAXENDA [Suspect]
     Active Substance: LIRAGLUTIDE
     Indication: Product used for unknown indication
     Dosage: UNK
     Route: 058

REACTIONS (9)
  - Disability [Unknown]
  - Hypometabolism [Unknown]
  - Mobility decreased [Unknown]
  - Ill-defined disorder [Unknown]
  - Weight loss poor [Unknown]
  - Nausea [Unknown]
  - Vomiting [Unknown]
  - Eructation [Unknown]
  - Drug ineffective [Unknown]
